FAERS Safety Report 4351391-1 (Version None)
Quarter: 2004Q2

REPORT INFORMATION
  Report Type: 
  Country: None (occurrence: None)
  Receive Date: 20040428
  Receipt Date: 20040414
  Transmission Date: 20050107
  Serious: Yes (Other)
  Sender: FDA-Public Use
  Company Number: USA030740628

PATIENT
  Sex: Female
  Weight: 78 kg

DRUGS (5)
  1. HUMULIN 70/30 [Suspect]
     Indication: DIABETES MELLITUS
     Dosage: 60 U/DY
     Dates: start: 19960101
  2. DIABETA [Concomitant]
  3. GLUCOPHAGE [Concomitant]
  4. VITAMIN E [Concomitant]
  5. CALTRATE (CALCIUM CARBONATE) [Concomitant]

REACTIONS (6)
  - BLOOD PRESSURE INCREASED [None]
  - CATARACT [None]
  - CONTUSION [None]
  - PHARMACEUTICAL PRODUCT COMPLAINT [None]
  - SCAR [None]
  - VISUAL DISTURBANCE [None]
